FAERS Safety Report 5058941-0 (Version None)
Quarter: 2006Q3

REPORT INFORMATION
  Report Type: 
  Country: None (occurrence: None)
  Receive Date: 20060721
  Receipt Date: 20060711
  Transmission Date: 20061208
  Serious: Yes (Other)
  Sender: FDA-Public Use
  Company Number: PHEH2006US08849

PATIENT
  Sex: Female

DRUGS (2)
  1. ESTRADERM [Suspect]
     Indication: HORMONE REPLACEMENT THERAPY
  2. CLIMARA [Suspect]

REACTIONS (2)
  - OVARIAN CANCER [None]
  - SURGERY [None]
